FAERS Safety Report 21729941 (Version 1)
Quarter: 2022Q4

REPORT INFORMATION
  Report Type: Spontaneous
  Country: US (occurrence: None)
  Receive Date: 20221214
  Receipt Date: 20221214
  Transmission Date: 20230113
  Serious: Yes (Death)
  Sender: FDA-Public Use
  Company Number: None

PATIENT
  Sex: Female

DRUGS (35)
  1. BOTOX [Suspect]
     Active Substance: ONABOTULINUMTOXINA
     Indication: Migraine without aura
     Dosage: OTHER QUANTITY : 100 UNIT;?OTHER FREQUENCY : EVERY 3 MONTHS;?OTHER ROUTE : INJECTION;?INJECT 200 UNI
     Route: 050
     Dates: start: 20191219
  2. BOTOX [Suspect]
     Active Substance: ONABOTULINUMTOXINA
     Dosage: OTHER QUANTITY : 200 UNITS;?OTHER FREQUENCY : EVERY 3 MONTHS;?OTHER ROUTE : INJECTION;?
     Route: 050
  3. ALPRAZOLAM [Concomitant]
     Active Substance: ALPRAZOLAM
  4. AMITRIPTYLINE [Concomitant]
     Active Substance: AMITRIPTYLINE
  5. AMLODIPINE [Concomitant]
     Active Substance: AMLODIPINE BESYLATE
  6. BUPROPION HYDROCHLORIDE [Concomitant]
     Active Substance: BUPROPION HYDROCHLORIDE
  7. BUT/APAP/CAF [Concomitant]
  8. CLONIDINE [Concomitant]
     Active Substance: CLONIDINE
  9. DEXAMETHASONE [Concomitant]
     Active Substance: DEXAMETHASONE
  10. DILTIAZEM [Concomitant]
     Active Substance: DILTIAZEM
  11. ELETRIPTAN [Concomitant]
  12. ERGOT/CAFFEN [Concomitant]
  13. FLUCONAZOLE [Concomitant]
     Active Substance: FLUCONAZOLE
  14. FLUTICASONE [Concomitant]
  15. FUROSEMIDE [Concomitant]
     Active Substance: FUROSEMIDE
  16. GABAPENTIN [Concomitant]
     Active Substance: GABAPENTIN
  17. LOSARTAN POTASSIUM [Concomitant]
     Active Substance: LOSARTAN POTASSIUM
  18. MONTELUKAST [Concomitant]
     Active Substance: MONTELUKAST SODIUM
  19. MYCOPHENOLAT SUS [Concomitant]
  20. NURTEC ODT [Concomitant]
     Active Substance: RIMEGEPANT SULFATE
  21. NYSTATIN [Concomitant]
     Active Substance: NYSTATIN
  22. OMEPRAZOLE [Concomitant]
     Active Substance: OMEPRAZOLE
  23. ONDANSETRON [Concomitant]
     Active Substance: ONDANSETRON
  24. PANTOPRAZOLE [Concomitant]
     Active Substance: PANTOPRAZOLE
  25. PROGESTERONE [Concomitant]
     Active Substance: PROGESTERONE
  26. PROMETHAZINE [Concomitant]
     Active Substance: PROMETHAZINE HYDROCHLORIDE
  27. PROPRANOLOL [Concomitant]
     Active Substance: PROPRANOLOL HYDROCHLORIDE
  28. SEVELAMER POW [Concomitant]
  29. SUPREP BOWL SOL [Concomitant]
  30. TIZANIDINE [Concomitant]
     Active Substance: TIZANIDINE
  31. TOPIRAMATE [Concomitant]
     Active Substance: TOPIRAMATE
  32. TRAMADOL HCL [Concomitant]
  33. TRULANCE [Concomitant]
     Active Substance: PLECANATIDE
  34. VENTOLIN HFA AER [Concomitant]
  35. ZOLPIDEM [Concomitant]
     Active Substance: ZOLPIDEM TARTRATE

REACTIONS (1)
  - Death [None]
